FAERS Safety Report 9174534 (Version 2)
Quarter: 2013Q2

REPORT INFORMATION
  Report Type: Spontaneous
  Country: IT (occurrence: IT)
  Receive Date: 20130320
  Receipt Date: 20130408
  Transmission Date: 20140414
  Serious: Yes (Hospitalization, Other)
  Sender: FDA-Public Use
  Company Number: IT-PFIZER INC-2013091094

PATIENT
  Age: 46 Year
  Sex: Male

DRUGS (1)
  1. XANAX [Suspect]
     Dosage: 15 DF, TOTAL DOSE
     Route: 048
     Dates: start: 20130217, end: 20130217

REACTIONS (4)
  - Suicide attempt [Unknown]
  - Overdose [Unknown]
  - Confusional state [Unknown]
  - Sopor [Unknown]
